FAERS Safety Report 8184372-0 (Version None)
Quarter: 2012Q1

REPORT INFORMATION
  Report Type: 
  Country: None (occurrence: None)
  Receive Date: 20120305
  Receipt Date: 20120223
  Transmission Date: 20120608
  Serious: Yes (Other)
  Sender: FDA-Public Use
  Company Number: US-JNJFOC-20120213430

PATIENT
  Sex: Female
  Weight: 50.8 kg

DRUGS (3)
  1. CONCERTA [Suspect]
     Indication: ATTENTION DEFICIT/HYPERACTIVITY DISORDER
     Route: 048
     Dates: start: 20100101, end: 20111101
  2. CONCERTA [Suspect]
     Route: 048
     Dates: start: 20080101, end: 20100101
  3. CONCERTA [Suspect]
     Route: 048
     Dates: start: 20111101, end: 20120201

REACTIONS (8)
  - RESTLESSNESS [None]
  - MADAROSIS [None]
  - HEADACHE [None]
  - GASTRIC DISORDER [None]
  - ADVERSE EVENT [None]
  - INCORRECT DOSE ADMINISTERED [None]
  - INITIAL INSOMNIA [None]
  - TREATMENT NONCOMPLIANCE [None]
